FAERS Safety Report 15429844 (Version 1)
Quarter: 2018Q3

REPORT INFORMATION
  Report Type: Spontaneous
  Country: US (occurrence: US)
  Receive Date: 20180920
  Receipt Date: 20180920
  Transmission Date: 20181010
  Serious: No
  Sender: FDA-Public Use
  Company Number: None

PATIENT
  Age: 61 Year
  Sex: Male

DRUGS (1)
  1. HARVONI [Suspect]
     Active Substance: LEDIPASVIR\SOFOSBUVIR
     Indication: HEPATITIS VIRAL
     Dosage: 90/400MG DAILY BY MOUTH
     Route: 048
     Dates: start: 20180827

REACTIONS (3)
  - Rash erythematous [None]
  - Irritability [None]
  - Skin exfoliation [None]

NARRATIVE: CASE EVENT DATE: 20180904
